FAERS Safety Report 19384009 (Version 1)
Quarter: 2021Q2

REPORT INFORMATION
  Report Type: Spontaneous
  Country: US (occurrence: US)
  Receive Date: 20210608
  Receipt Date: 20210608
  Transmission Date: 20210717
  Serious: No
  Sender: FDA-Public Use
  Company Number: US-JNJFOC-20210547189

PATIENT
  Age: 51 Year
  Sex: Female

DRUGS (25)
  1. COVID?19 VACCINE [Concomitant]
     Indication: IMMUNISATION
     Dosage: SECOND DOSE, LEFT ARM
     Route: 065
     Dates: start: 20210504
  2. EQUATE ALLERGY RELIEF [DIPHENHYDRAMINE HYDROCHLORIDE] [Concomitant]
     Indication: EYE PRURITUS
     Route: 065
     Dates: start: 202105
  3. SERTRALINE [Concomitant]
     Active Substance: SERTRALINE HYDROCHLORIDE
     Indication: DEPRESSION
     Route: 065
  4. VISINE A MULTI?ACTION EYE ALLERGY RELIEF [Suspect]
     Active Substance: NAPHAZOLINE HYDROCHLORIDE\PHENIRAMINE MALEATE
     Indication: OCULAR HYPERAEMIA
     Route: 047
     Dates: start: 202105
  5. AZELASTINE. [Concomitant]
     Active Substance: AZELASTINE HYDROCHLORIDE
     Indication: OCULAR HYPERAEMIA
     Route: 065
     Dates: start: 202105
  6. BUPROPION. [Concomitant]
     Active Substance: BUPROPION
     Indication: DEPRESSION
     Route: 065
  7. BENADRYL [Concomitant]
     Active Substance: DIPHENHYDRAMINE HYDROCHLORIDE
     Indication: EYE PRURITUS
  8. VISINE A MULTI?ACTION EYE ALLERGY RELIEF [Suspect]
     Active Substance: NAPHAZOLINE HYDROCHLORIDE\PHENIRAMINE MALEATE
     Indication: EYE PAIN
  9. STYE EYE RELIEF [Concomitant]
     Indication: EYE PRURITUS
  10. STYE EYE RELIEF [Concomitant]
     Indication: VACCINATION COMPLICATION
  11. EQUATE ALLERGY RELIEF [DIPHENHYDRAMINE HYDROCHLORIDE] [Concomitant]
     Indication: EYE PAIN
  12. VISINE A MULTI?ACTION EYE ALLERGY RELIEF [Suspect]
     Active Substance: NAPHAZOLINE HYDROCHLORIDE\PHENIRAMINE MALEATE
     Indication: EYE PRURITUS
  13. VISINE A MULTI?ACTION EYE ALLERGY RELIEF [Suspect]
     Active Substance: NAPHAZOLINE HYDROCHLORIDE\PHENIRAMINE MALEATE
     Indication: VACCINATION COMPLICATION
  14. COVID?19 VACCINE [Concomitant]
     Dosage: FIRST DOSE, LEFT ARM
     Route: 065
     Dates: start: 20210413
  15. STYE EYE RELIEF [Concomitant]
     Indication: OCULAR HYPERAEMIA
     Route: 047
     Dates: start: 202105
  16. BENADRYL [Concomitant]
     Active Substance: DIPHENHYDRAMINE HYDROCHLORIDE
     Indication: EYELID MARGIN CRUSTING
  17. VITAMINS NOS [Concomitant]
     Active Substance: VITAMINS
     Indication: PRODUCT USED FOR UNKNOWN INDICATION
     Dosage: EVERY NOW AND THEN
     Route: 065
  18. CALCIUM;COLECALCIFEROL [Concomitant]
     Active Substance: CALCIUM\CHOLECALCIFEROL
     Indication: PRODUCT USED FOR UNKNOWN INDICATION
     Dosage: EVERY NOW AND THEN
     Route: 065
  19. STYE EYE RELIEF [Concomitant]
     Indication: EYE PAIN
  20. BENADRYL [Concomitant]
     Active Substance: DIPHENHYDRAMINE HYDROCHLORIDE
     Indication: OCULAR HYPERAEMIA
     Route: 065
     Dates: start: 202105
  21. BENADRYL [Concomitant]
     Active Substance: DIPHENHYDRAMINE HYDROCHLORIDE
     Indication: VACCINATION COMPLICATION
  22. EQUATE ALLERGY RELIEF [DIPHENHYDRAMINE HYDROCHLORIDE] [Concomitant]
     Indication: VACCINATION COMPLICATION
  23. EQUATE ALLERGY RELIEF [DIPHENHYDRAMINE HYDROCHLORIDE] [Concomitant]
     Indication: OCULAR HYPERAEMIA
  24. AZELASTINE. [Concomitant]
     Active Substance: AZELASTINE HYDROCHLORIDE
     Indication: EYE PAIN
  25. AZELASTINE. [Concomitant]
     Active Substance: AZELASTINE HYDROCHLORIDE
     Indication: EYE PRURITUS

REACTIONS (2)
  - Product use in unapproved indication [Unknown]
  - Expired product administered [Unknown]

NARRATIVE: CASE EVENT DATE: 202105
